FAERS Safety Report 11375157 (Version 2)
Quarter: 2015Q3

REPORT INFORMATION
  Report Type: Spontaneous
  Country: IT (occurrence: IT)
  Receive Date: 20150813
  Receipt Date: 20150817
  Transmission Date: 20151125
  Serious: Yes (Other)
  Sender: FDA-Public Use
  Company Number: IT-ACTAVIS-2015-16935

PATIENT
  Age: 60 Year
  Sex: Female

DRUGS (6)
  1. ZANTAC [Concomitant]
     Active Substance: RANITIDINE HYDROCHLORIDE
     Indication: PROPHYLAXIS OF NAUSEA AND VOMITING
     Dosage: 50 MG, UNKNOWN
     Route: 041
     Dates: start: 20150518, end: 20150518
  2. EMEND [Concomitant]
     Active Substance: APREPITANT
     Indication: PROPHYLAXIS OF NAUSEA AND VOMITING
     Dosage: 125 MG, UNKNOWN
     Route: 048
     Dates: start: 20150518, end: 20150518
  3. OXALIPLATIN (UNKNOWN) [Suspect]
     Active Substance: OXALIPLATIN
     Indication: CHEMOTHERAPY
     Dosage: 150 MG, CYCLICAL
     Route: 042
     Dates: start: 20150404, end: 20150518
  4. ALOXI [Concomitant]
     Active Substance: PALONOSETRON HYDROCHLORIDE
     Indication: PROPHYLAXIS OF NAUSEA AND VOMITING
     Dosage: 250 ?G, UNKNOWN
     Route: 040
     Dates: start: 20150518, end: 20150518
  5. AVASTIN [Concomitant]
     Active Substance: BEVACIZUMAB
     Indication: CHEMOTHERAPY
     Dosage: 325 MG, UNKNOWN
     Route: 042
     Dates: start: 20150404, end: 20150518
  6. DESAMETASONE FOSF                  /00016002/ [Concomitant]
     Active Substance: DEXAMETHASONE SODIUM PHOSPHATE
     Indication: PROPHYLAXIS OF NAUSEA AND VOMITING
     Dosage: 12 MG, UNKNOWN
     Route: 065
     Dates: start: 20150518, end: 20150518

REACTIONS (1)
  - Pruritus [Recovered/Resolved]

NARRATIVE: CASE EVENT DATE: 20150518
